FAERS Safety Report 15000666 (Version 1)
Quarter: 2018Q2

REPORT INFORMATION
  Report Type: Spontaneous
  Country: ES (occurrence: ES)
  Receive Date: 20180612
  Receipt Date: 20180612
  Transmission Date: 20180711
  Serious: Yes (Hospitalization)
  Sender: FDA-Public Use
  Company Number: ES-TEVA-2018-ES-905717

PATIENT
  Age: 79 Year
  Sex: Female

DRUGS (7)
  1. METOCLOPRAMIDA 10 MG COMPRIMIDOS EFG, 30 COMPRIMIDOS [Suspect]
     Active Substance: METOCLOPRAMIDE HYDROCHLORIDE
     Indication: VOMITING
     Route: 048
     Dates: start: 20170517
  2. DULOXETINA 60 MG CAPSULAS , 28 C?PSULAS [Suspect]
     Active Substance: DULOXETINE
     Indication: ADJUSTMENT DISORDER
     Route: 048
     Dates: start: 20170613, end: 20170625
  3. BEMIPARINA (2817A) [Suspect]
     Active Substance: BEMIPARIN SODIUM
     Indication: PROPHYLAXIS
     Dosage: 3500 IU (INTERNATIONAL UNIT) DAILY;
     Route: 058
     Dates: start: 20170622
  4. HALOPERIDOL 2 MG/ML GOTAS [Suspect]
     Active Substance: HALOPERIDOL
     Dosage: 10 GTT DAILY;
     Route: 048
     Dates: start: 20170613
  5. DALACIN 300 MG CAPSULAS DURAS, 24 C?PSULAS [Suspect]
     Active Substance: CLINDAMYCIN HYDROCHLORIDE
     Route: 048
     Dates: start: 20170609
  6. TARGIN (NALOXONE HYDROCHLORIDE, OXYCODONE HYDROCHLORIDE) [Suspect]
     Active Substance: NALOXONE HYDROCHLORIDE\OXYCODONE HYDROCHLORIDE
     Indication: CAUDA EQUINA SYNDROME
     Route: 048
     Dates: start: 20170613
  7. LEVOFLOXACINO 500 MG 7 TABLETS [Suspect]
     Active Substance: LEVOFLOXACIN
     Indication: PLEURAL EFFUSION
     Dates: start: 20170602, end: 20170626

REACTIONS (2)
  - Pruritus [Recovered/Resolved]
  - Rash maculo-papular [Recovered/Resolved]

NARRATIVE: CASE EVENT DATE: 20170622
